FAERS Safety Report 6941260-2 (Version None)
Quarter: 2010Q3

REPORT INFORMATION
  Report Type: 
  Country: None (occurrence: None)
  Receive Date: 20100825
  Receipt Date: 20100726
  Transmission Date: 20110219
  Serious: No
  Sender: FDA-Public Use
  Company Number: US-BRISTOL-MYERS SQUIBB COMPANY-15208408

PATIENT
  Age: 82 Year
  Sex: Female
  Weight: 95 kg

DRUGS (3)
  1. ONGLYZA [Suspect]
     Dosage: LESS THAN 2 WEEKS
  2. LANTUS [Concomitant]
  3. DIOVAN [Concomitant]

REACTIONS (3)
  - BLOOD GLUCOSE INCREASED [None]
  - FLUID RETENTION [None]
  - WEIGHT INCREASED [None]
